FAERS Safety Report 23723633 (Version 2)
Quarter: 2025Q1

REPORT INFORMATION
  Report Type: Spontaneous
  Country: CL (occurrence: CL)
  Receive Date: 20240409
  Receipt Date: 20250205
  Transmission Date: 20250409
  Serious: No
  Sender: GILEAD
  Company Number: CL-GLAXOSMITHKLINE-CL2024AMR041911

PATIENT
  Sex: Female

DRUGS (1)
  1. AMBRISENTAN [Suspect]
     Active Substance: AMBRISENTAN
     Indication: Product used for unknown indication
     Route: 065

REACTIONS (2)
  - Exposure during pregnancy [Unknown]
  - Contraindicated product administered [Unknown]
